FAERS Safety Report 10168191 (Version 1)
Quarter: 2014Q2

REPORT INFORMATION
  Report Type: Spontaneous
  Country: US (occurrence: US)
  Receive Date: 20140512
  Receipt Date: 20140512
  Transmission Date: 20141212
  Serious: No
  Sender: FDA-Public Use
  Company Number: US-ASTRAZENECA-2013SE82452

PATIENT
  Age: 70 Year
  Sex: Female

DRUGS (1)
  1. FASLODEX [Suspect]
     Indication: LUNG CANCER METASTATIC
     Route: 030

REACTIONS (2)
  - Dementia [Not Recovered/Not Resolved]
  - Off label use [Unknown]
